FAERS Safety Report 4673580-9 (Version None)
Quarter: 2005Q2

REPORT INFORMATION
  Report Type: 
  Country: None (occurrence: None)
  Receive Date: 20050523
  Receipt Date: 20050505
  Transmission Date: 20051028
  Serious: Yes (Hospitalization)
  Sender: FDA-Public Use
  Company Number: 2005072262

PATIENT
  Age: 46 Year
  Sex: Male
  Weight: 163.2949 kg

DRUGS (10)
  1. BEXTRA [Suspect]
     Indication: PAIN MANAGEMENT
     Dosage: 40 MG (20 MG, 2 IN 1 D), ORAL
     Route: 048
     Dates: start: 20021101
  2. ALL OTHER THERAPEUTIC PRODUCTS (ALL OTHER THERAPEUTIC PRODUCTS) [Concomitant]
  3. GABITRIL [Concomitant]
  4. TOPIRAMATE [Concomitant]
  5. HYDROCODONE BITARTRATE [Concomitant]
  6. GLUCOVANCE [Concomitant]
  7. LIPITOR [Concomitant]
  8. NEXIUM [Concomitant]
  9. TAMSULOSIN HYDROCHLORIDE (TAMSULOSIN HYDROCHLORIDE) [Concomitant]
  10. LISINOPRIL W/HYDROCHLOROTHIAZIDE ( HYDROCHLOROTHIAZIDE, LISINOPRIL) [Concomitant]

REACTIONS (5)
  - BLADDER DISORDER [None]
  - COLOSTOMY [None]
  - DIABETIC GANGRENE [None]
  - GASTROOESOPHAGEAL REFLUX DISEASE [None]
  - INFECTION [None]
